FAERS Safety Report 4804824-8 (Version None)
Quarter: 2005Q4

REPORT INFORMATION
  Report Type: 
  Country: None (occurrence: None)
  Receive Date: 20051020
  Receipt Date: 20050929
  Transmission Date: 20060501
  Serious: Yes (Hospitalization, Other)
  Sender: FDA-Public Use
  Company Number: US-BRISTOL-MYERS SQUIBB COMPANY-13126800

PATIENT
  Age: 62 Year
  Sex: Male
  Weight: 75 kg

DRUGS (8)
  1. CISPLATIN [Suspect]
     Indication: ADENOCARCINOMA PANCREAS
     Route: 058
     Dates: start: 20050725, end: 20050822
  2. INTRON A [Suspect]
     Indication: ADENOCARCINOMA PANCREAS
     Route: 042
     Dates: start: 20050725, end: 20050826
  3. FLUOROURACIL [Suspect]
     Indication: ADENOCARCINOMA PANCREAS
     Route: 042
     Dates: start: 20050725, end: 20050826
  4. RADIOTHERAPY [Suspect]
     Indication: ADENOCARCINOMA PANCREAS
  5. TAMSULOSIN [Concomitant]
     Indication: PROSTATISM
  6. CLONAZEPAM [Concomitant]
     Indication: ANXIETY
  7. ESOMEPRAZOLE [Concomitant]
     Indication: GASTROOESOPHAGEAL REFLUX DISEASE
  8. FENTANYL [Concomitant]
     Indication: PAIN
     Route: 062

REACTIONS (5)
  - ABDOMINAL PAIN [None]
  - DEHYDRATION [None]
  - HEART RATE DECREASED [None]
  - NAUSEA [None]
  - VOMITING [None]
